FAERS Safety Report 23367220 (Version 1)
Quarter: 2024Q1

REPORT INFORMATION
  Report Type: Spontaneous
  Country: US (occurrence: US)
  Receive Date: 20240104
  Receipt Date: 20240104
  Transmission Date: 20240410
  Serious: Yes (Other)
  Sender: FDA-Public Use
  Company Number: US-PFIZER INC-202300455983

PATIENT
  Age: 24 Year
  Sex: Male

DRUGS (1)
  1. ETRASIMOD [Suspect]
     Active Substance: ETRASIMOD
     Dosage: 2 MG, 1X/DAY
     Route: 048

REACTIONS (1)
  - Colitis [Unknown]
